FAERS Safety Report 5071798-7 (Version None)
Quarter: 2006Q3

REPORT INFORMATION
  Report Type: 
  Country: None (occurrence: None)
  Receive Date: 20060801
  Receipt Date: 20060718
  Transmission Date: 20061208
  Serious: Yes (Death, Hospitalization)
  Sender: FDA-Public Use
  Company Number: T200600781

PATIENT
  Age: 79 Year
  Sex: Male
  Weight: 86 kg

DRUGS (18)
  1. OXYCODONE HCL [Suspect]
     Indication: PAIN
     Dosage: 15 MG, Q4HR, ORAL
     Route: 048
     Dates: start: 20050906, end: 20050914
  2. OXYCODONE HYDROCHLORIDE [Suspect]
     Indication: PAIN
     Dosage: 5 MG, PRN, ORAL
     Route: 048
     Dates: start: 20050215, end: 20050905
  3. CEP-7055 () 240MG [Suspect]
     Indication: MESOTHELIOMA
     Dosage: 240 MG, TID, ORAL
     Route: 048
     Dates: start: 20050420, end: 20050908
  4. OXYCONTIN [Suspect]
     Indication: PAIN
     Dosage: SEE IMAGE
     Dates: start: 20050201, end: 20050711
  5. OXYCONTIN [Suspect]
     Indication: PAIN
     Dosage: SEE IMAGE
     Dates: start: 20050712, end: 20050914
  6. IBUPROFEN [Suspect]
     Indication: PAIN
     Dosage: 800 MG, TID,
     Dates: start: 20050906, end: 20050914
  7. VERAPAMIL [Concomitant]
  8. HYDROCHLOROTHIAZIDE W/TRIAMTERENE (TRIAMTERENE, HYDROCHLOROTHIAZIDE) [Concomitant]
  9. TRIAMTERENE (TRIAMTERENE) TABLET [Concomitant]
  10. VITAMINS [Concomitant]
  11. AMBIEN [Concomitant]
  12. LORAZEPAM [Concomitant]
  13. REGLAN [Concomitant]
  14. ZANTAC [Concomitant]
  15. DECADRON [Concomitant]
  16. DONNATAL (PHENOBARBITAL, HYOSCYAMINE SULFATE, HYOSCINE HYDROBROMIDE, A [Concomitant]
  17. TOPROL-XL [Concomitant]
  18. LISINOPRIL [Concomitant]

REACTIONS (9)
  - ANXIETY [None]
  - CONFUSIONAL STATE [None]
  - GOITRE [None]
  - MENTAL STATUS CHANGES [None]
  - METASTATIC NEOPLASM [None]
  - PLEURAL EFFUSION [None]
  - PLEURAL FIBROSIS [None]
  - PNEUMONIA [None]
  - SOMNOLENCE [None]
